FAERS Safety Report 5248839-7 (Version None)
Quarter: 2007Q1

REPORT INFORMATION
  Report Type: 
  Country: None (occurrence: None)
  Receive Date: 20070228
  Receipt Date: 20060228
  Transmission Date: 20070707
  Serious: No
  Sender: FDA-Public Use
  Company Number: US-GLAXOSMITHKLINE-A0595967A

PATIENT
  Age: 70 Year
  Sex: Male

DRUGS (2)
  1. VALTREX [Suspect]
     Indication: APHTHOUS STOMATITIS
     Dosage: 1CAPL PER DAY
     Route: 048
     Dates: start: 20010101
  2. HYDROGEN PEROXIDE SOLUTION [Concomitant]
     Indication: DRUG USE FOR UNKNOWN INDICATION
     Route: 048
     Dates: start: 20060201

REACTIONS (2)
  - DRUG EFFECT DECREASED [None]
  - DRUG INEFFECTIVE [None]
